FAERS Safety Report 13268662 (Version 1)
Quarter: 2017Q1

REPORT INFORMATION
  Report Type: Spontaneous
  Country: CH (occurrence: CH)
  Receive Date: 20170224
  Receipt Date: 20170224
  Transmission Date: 20170428
  Serious: Yes (Other)
  Sender: FDA-Public Use
  Company Number: CH-009507513-1702CHE010044

PATIENT
  Age: 61 Year
  Sex: Female
  Weight: 42 kg

DRUGS (17)
  1. REMERON [Suspect]
     Active Substance: MIRTAZAPINE
     Dosage: 15 MG, QD
     Dates: start: 20161017, end: 20161020
  2. SYMBICORT [Concomitant]
     Active Substance: BUDESONIDE\FORMOTEROL FUMARATE DIHYDRATE
     Dosage: 400/12 MICROGRAM, QD (USED SINCE YEARS)
  3. LEMON BALM (+) PASSIONFLOWER (+) PURPLE BUTTERBUR (+) VALERIAN [Concomitant]
     Dosage: 1 DF, QD (1 DF- 6 CAPSULES)
     Dates: start: 20161014
  4. TRITTICO [Concomitant]
     Active Substance: TRAZODONE HYDROCHLORIDE
     Dosage: 150 MG, QD
     Dates: start: 20161114
  5. REMERON [Suspect]
     Active Substance: MIRTAZAPINE
     Dosage: 30 MG, QD
     Dates: start: 20161024
  6. MAGNESIOCARD [Concomitant]
     Active Substance: MAGNESIUM ASPARTATE HYDROCHLORIDE
     Dosage: 10 MMOL, QD
     Dates: end: 20161025
  7. QUETIAPINE FUMARATE. [Concomitant]
     Active Substance: QUETIAPINE FUMARATE
     Dosage: 25 MG, QD
     Dates: start: 20161024
  8. SPIRIVA [Concomitant]
     Active Substance: TIOTROPIUM BROMIDE MONOHYDRATE
     Dosage: 18 MICROGRAM  QD (USED SINCE YEARS)
  9. BRUFEN [Concomitant]
     Active Substance: IBUPROFEN
     Dosage: 400 MG, QD
     Dates: start: 20161018, end: 20161019
  10. ASPIRIN CARDIO [Concomitant]
     Active Substance: ASPIRIN
     Dosage: 100 MG, QD (USED SINCE YEARS)
  11. BRUFEN [Concomitant]
     Active Substance: IBUPROFEN
     Dosage: 1200MG QD
     Dates: start: 20161020
  12. TRITTICO [Concomitant]
     Active Substance: TRAZODONE HYDROCHLORIDE
     Dosage: 100 MG, QD
     Dates: start: 20161103, end: 20161113
  13. REMERON [Suspect]
     Active Substance: MIRTAZAPINE
     Dosage: 15 MG, QD
     Dates: start: 20161025, end: 20161026
  14. REDORMIN (HOPS (+) VALERIAN) [Concomitant]
     Active Substance: HOPS\VALERIAN
     Dosage: 500 MG, QD
     Dates: start: 20161014, end: 20161121
  15. TRITTICO [Concomitant]
     Active Substance: TRAZODONE HYDROCHLORIDE
     Dosage: 50 MG, QD
     Dates: start: 20161026, end: 20161030
  16. REMERON [Suspect]
     Active Substance: MIRTAZAPINE
     Dosage: 22.5 MG, QD
     Dates: start: 20161021, end: 20161023
  17. IMIGRAN (SUMATRIPTAN) [Concomitant]
     Active Substance: SUMATRIPTAN
     Indication: CLUSTER HEADACHE
     Dosage: UNK
     Dates: start: 20161017, end: 20161027

REACTIONS (1)
  - Cluster headache [Recovered/Resolved]

NARRATIVE: CASE EVENT DATE: 20161018
